FAERS Safety Report 9661651 (Version 2)
Quarter: 2013Q4

REPORT INFORMATION
  Report Type: Spontaneous
  Country: US (occurrence: US)
  Receive Date: 20131031
  Receipt Date: 20131031
  Transmission Date: 20140711
  Serious: No
  Sender: FDA-Public Use
  Company Number: US-PURDUE-USA-2010-0053206

PATIENT
  Sex: Male

DRUGS (2)
  1. OXYCONTIN (NDA 22-272) [Suspect]
     Indication: PAIN
     Dosage: 200 MG, DAILY
     Dates: start: 20100929
  2. OXYCONTIN (NDA 22-272) [Suspect]
     Dosage: 60 MG, BID

REACTIONS (3)
  - Drug effect decreased [Unknown]
  - Abdominal discomfort [Unknown]
  - Inadequate analgesia [Unknown]
